FAERS Safety Report 8988468 (Version 1)
Quarter: 2012Q4

REPORT INFORMATION
  Report Type: Spontaneous
  Country: US (occurrence: None)
  Receive Date: 20121224
  Receipt Date: 20121224
  Transmission Date: 20130627
  Serious: No
  Sender: FDA-Public Use
  Company Number: None

PATIENT
  Age: 57 Year
  Sex: Female
  Weight: 83.01 kg

DRUGS (3)
  1. PEGASUS [Suspect]
     Indication: CHRONIC HEPATITIS C
     Dosage: Pegasus 1 injection wk  1 x wk  IM
     Route: 030
     Dates: start: 20110701, end: 20120331
  2. RIBAVARIN [Suspect]
     Indication: CHRONIC HEPATITIS C
     Dosage: ribavarin 3 x day po
     Route: 048
     Dates: start: 20110701, end: 20120331
  3. VICTRELLIS [Suspect]
     Indication: CHRONIC HEPATITIS C
     Dosage: Victrellis  3 x day
     Dates: start: 20110701, end: 20120331

REACTIONS (13)
  - Skin lesion [None]
  - Urticaria [None]
  - Pruritus [None]
  - Skin exfoliation [None]
  - Scab [None]
  - Impaired healing [None]
  - Skin ulcer [None]
  - Scar [None]
  - Rash erythematous [None]
  - Visual impairment [None]
  - Muscle mass [None]
  - Burning sensation [None]
  - Insomnia [None]
